FAERS Safety Report 21945595 (Version 1)
Quarter: 2023Q1

REPORT INFORMATION
  Report Type: Spontaneous
  Country: TW (occurrence: TW)
  Receive Date: 20230202
  Receipt Date: 20230202
  Transmission Date: 20230418
  Serious: Yes (Other)
  Sender: FDA-Public Use
  Company Number: TW-UCBSA-2023004751

PATIENT
  Age: 25 Year
  Sex: Male

DRUGS (4)
  1. LEVETIRACETAM [Suspect]
     Active Substance: LEVETIRACETAM
     Indication: Venous thrombosis
     Dosage: 1000 MILLIGRAM
  2. LEVETIRACETAM [Suspect]
     Active Substance: LEVETIRACETAM
     Indication: Off label use
  3. ENOXAPARIN [Suspect]
     Active Substance: ENOXAPARIN
     Indication: Venous thrombosis
     Dosage: 6000 INTERNATIONAL UNIT
  4. MANNITOL [Suspect]
     Active Substance: MANNITOL
     Indication: Venous thrombosis
     Dosage: 100 MILLILITER
     Route: 041

REACTIONS (2)
  - Transverse sinus stenosis [Unknown]
  - Product use in unapproved indication [Unknown]
